FAERS Safety Report 24577721 (Version 1)
Quarter: 2024Q4

REPORT INFORMATION
  Report Type: Spontaneous
  Country: US (occurrence: US)
  Receive Date: 20241104
  Receipt Date: 20241104
  Transmission Date: 20250114
  Serious: No
  Sender: ALKERMES
  Company Number: US-ALKERMES INC.-ALK-2024-002737

PATIENT
  Age: 68 Year
  Sex: Female

DRUGS (1)
  1. VIVITROL [Suspect]
     Active Substance: NALTREXONE
     Indication: Alcoholism
     Dosage: 380 MILLIGRAM, Q28D
     Route: 030
     Dates: start: 202410, end: 202410

REACTIONS (6)
  - Tinnitus [Unknown]
  - Nausea [Recovering/Resolving]
  - Dizziness [Unknown]
  - Vomiting [Recovered/Resolved]
  - Sleep disorder [Unknown]
  - Injection site mass [Unknown]

NARRATIVE: CASE EVENT DATE: 20241001
